FAERS Safety Report 21745656 (Version 1)
Quarter: 2022Q4

REPORT INFORMATION
  Report Type: Spontaneous
  Country: CN (occurrence: CN)
  Receive Date: 20221219
  Receipt Date: 20221219
  Transmission Date: 20230113
  Serious: Yes (Hospitalization, Other)
  Sender: FDA-Public Use
  Company Number: CN-ORGANON-O2212CHN000986

PATIENT
  Age: 31 Year
  Sex: Female
  Weight: 54.3 kg

DRUGS (10)
  1. FOLLITROPIN BETA [Suspect]
     Active Substance: FOLLITROPIN BETA
     Indication: Ovulation induction
     Dosage: 120IU, QD||
     Route: 058
     Dates: start: 20221027, end: 20221031
  2. FOLLITROPIN BETA [Suspect]
     Active Substance: FOLLITROPIN BETA
     Dosage: 125IU, QD||
     Route: 058
     Dates: start: 20221101, end: 20221103
  3. MENOTROPINS [Suspect]
     Active Substance: MENOTROPINS
     Indication: Ovulation induction
     Dosage: 150IU, QD||
     Route: 030
     Dates: start: 20221107, end: 20221109
  4. MENOTROPINS [Suspect]
     Active Substance: MENOTROPINS
     Dosage: 150IU, QD||
     Route: 030
     Dates: start: 20221107, end: 20221109
  5. CHORIONIC GONADOTROPHIN [Suspect]
     Active Substance: CHORIOGONADOTROPIN ALFA
     Indication: Ovulation induction
     Dosage: 10000IU, QD||
     Route: 030
     Dates: start: 20221109, end: 20221109
  6. LUTROPIN ALFA [Suspect]
     Active Substance: LUTROPIN ALFA
     Indication: Ovulation induction
     Dosage: 75IU, QD||
     Route: 058
     Dates: start: 20221107, end: 20221109
  7. FOLLITROPIN ALFA [Suspect]
     Active Substance: FOLLITROPIN ALFA
     Indication: Ovulation induction
     Dosage: 150IU, QD||
     Route: 058
     Dates: start: 20221104, end: 20221104
  8. FOLLITROPIN ALFA [Suspect]
     Active Substance: FOLLITROPIN ALFA
     Dosage: 75IU, QD||
     Route: 058
     Dates: start: 20221107, end: 20221108
  9. SODIUM CHLORIDE [Concomitant]
     Active Substance: SODIUM CHLORIDE
     Indication: Medication dilution
     Dosage: 1ML, QD||; (0.9%, 10ML)
     Route: 030
     Dates: start: 20221104, end: 20221109
  10. SODIUM CHLORIDE [Concomitant]
     Active Substance: SODIUM CHLORIDE
     Dosage: 2ML, QD||; (0.9%, 10ML)
     Route: 030
     Dates: start: 20221109, end: 20221109

REACTIONS (10)
  - Abdominal distension [Recovering/Resolving]
  - Nausea [Recovering/Resolving]
  - Vomiting [Recovering/Resolving]
  - Decreased appetite [Recovering/Resolving]
  - Chest discomfort [Recovering/Resolving]
  - Oliguria [Recovering/Resolving]
  - Hepatic function abnormal [Recovering/Resolving]
  - Intra-abdominal fluid collection [Recovering/Resolving]
  - Pleural effusion [Recovering/Resolving]
  - Ovarian hyperstimulation syndrome [Unknown]

NARRATIVE: CASE EVENT DATE: 20221111
